FAERS Safety Report 6917311-8 (Version None)
Quarter: 2010Q3

REPORT INFORMATION
  Report Type: 
  Country: None (occurrence: None)
  Receive Date: 20100810
  Receipt Date: 20100804
  Transmission Date: 20110219
  Serious: Yes (Hospitalization)
  Sender: FDA-Public Use
  Company Number: JP-B.I. PHARMACEUTICALS,INC./RIDGEFIELD-2010-BP-08572NB

PATIENT
  Sex: Male
  Weight: 62 kg

DRUGS (5)
  1. MICARDIS [Suspect]
     Indication: HYPERTENSION
     Dosage: 40 MG
     Route: 048
     Dates: start: 20061011, end: 20100727
  2. RABEPRAZOLE SODIUM [Suspect]
     Indication: REFLUX OESOPHAGITIS
     Dosage: 10 MG
     Route: 048
     Dates: start: 20031003, end: 20100727
  3. NEUFAN [Suspect]
     Indication: HYPERURICAEMIA
     Dosage: 100 MG
     Route: 048
     Dates: start: 20001204, end: 20100727
  4. NORVASC [Concomitant]
     Indication: HYPERTENSION
     Dosage: 2.5 MG
     Route: 048
     Dates: start: 20000202, end: 20100727
  5. TOLKSIEL [Concomitant]
     Indication: ANGINA PECTORIS
     Dosage: 50 MG
     Route: 048
     Dates: start: 20010713, end: 20100727

REACTIONS (1)
  - INTERSTITIAL LUNG DISEASE [None]
